FAERS Safety Report 13366659 (Version 1)
Quarter: 2017Q1

REPORT INFORMATION
  Report Type: Other
  Country: GB (occurrence: JP)
  Receive Date: 20170323
  Receipt Date: 20170323
  Transmission Date: 20170429
  Serious: Yes (Hospitalization, Other)
  Sender: FDA-Public Use
  Company Number: JP-INTERNATIONAL MEDICATION SYSTEMS, LIMITED-1064598

PATIENT
  Age: 54 Year
  Sex: Female
  Weight: 54 kg

DRUGS (7)
  1. CARVEDILOL. [Concomitant]
     Active Substance: CARVEDILOL
  2. REMIFENTANIL [Concomitant]
     Active Substance: REMIFENTANIL
     Route: 040
  3. CLOBAZAM [Concomitant]
     Active Substance: CLOBAZAM
     Route: 048
  4. ZONISAMIDE. [Concomitant]
     Active Substance: ZONISAMIDE
  5. EPINEPHRINE. [Suspect]
     Active Substance: EPINEPHRINE
  6. OXYGEN. [Concomitant]
     Active Substance: OXYGEN
  7. LAMOTRIGINE. [Concomitant]
     Active Substance: LAMOTRIGINE
     Route: 048

REACTIONS (1)
  - Stress cardiomyopathy [Recovered/Resolved]
